FAERS Safety Report 6463256-X (Version None)
Quarter: 2009Q4

REPORT INFORMATION
  Report Type: 
  Country: None (occurrence: None)
  Receive Date: 20091130
  Receipt Date: 20090609
  Transmission Date: 20100525
  Serious: Yes (Hospitalization)
  Sender: FDA-Public Use
  Company Number: US-AMGEN-QUU350975

PATIENT
  Sex: Female

DRUGS (3)
  1. ENBREL [Suspect]
     Indication: RHEUMATOID ARTHRITIS
     Route: 058
     Dates: start: 20040601
  2. METHOTREXATE [Concomitant]
     Route: 048
     Dates: start: 20020101
  3. PNEUMOCOCCAL VACCINE [Concomitant]

REACTIONS (2)
  - KIDNEY INFECTION [None]
  - UPPER RESPIRATORY TRACT INFECTION [None]
